FAERS Safety Report 21949893 (Version 2)
Quarter: 2023Q1

REPORT INFORMATION
  Report Type: Spontaneous
  Country: IT (occurrence: IT)
  Receive Date: 20230203
  Receipt Date: 20230206
  Transmission Date: 20230418
  Serious: Yes (Other)
  Sender: FDA-Public Use
  Company Number: IT-MINISAL02-906934

PATIENT
  Age: 48 Year
  Sex: Female
  Weight: 50 kg

DRUGS (2)
  1. REBLOZYL [Suspect]
     Active Substance: LUSPATERCEPT-AAMT
     Indication: Thalassaemia beta
     Dosage: 1 MG/KG EVERY 21 DAYS USED TWO VIALS OF REBLOZYL 25MG (AIC 048905018) LOT CPUF04R EXPIRE 31/05/2024
     Route: 058
     Dates: start: 20221219
  2. DEFERASIROX [Concomitant]
     Active Substance: DEFERASIROX
     Indication: Hyperferritinaemia
     Dosage: 720 MG/DIE
     Route: 048
     Dates: start: 2008

REACTIONS (1)
  - Haemolysis [Recovering/Resolving]

NARRATIVE: CASE EVENT DATE: 20221229
